FAERS Safety Report 13427599 (Version 1)
Quarter: 2017Q2

REPORT INFORMATION
  Report Type: Spontaneous
  Country: JP (occurrence: JP)
  Receive Date: 20170411
  Receipt Date: 20170411
  Transmission Date: 20170830
  Serious: Yes (Other)
  Sender: FDA-Public Use
  Company Number: JP-ASTRAZENECA-2017SE37429

PATIENT
  Age: 88 Year
  Sex: Female

DRUGS (5)
  1. SEROQUEL [Suspect]
     Active Substance: QUETIAPINE FUMARATE
     Route: 048
  2. PROPIVERINE [Suspect]
     Active Substance: PROPIVERINE
     Route: 048
  3. MAGMITT [Suspect]
     Active Substance: MAGNESIUM OXIDE
     Route: 048
  4. VIVIANT [Suspect]
     Active Substance: BAZEDOXIFENE
     Route: 048
  5. BETANIS [Suspect]
     Active Substance: MIRABEGRON
     Route: 048
     Dates: start: 20161230, end: 20170113

REACTIONS (2)
  - Erythema multiforme [Recovered/Resolved]
  - Pyrexia [Unknown]

NARRATIVE: CASE EVENT DATE: 201701
